FAERS Safety Report 7267201-9 (Version None)
Quarter: 2011Q1

REPORT INFORMATION
  Report Type: 
  Country: None (occurrence: None)
  Receive Date: 20110201
  Receipt Date: 20110120
  Transmission Date: 20110831
  Serious: Yes (Hospitalization, Other)
  Sender: FDA-Public Use
  Company Number: US-BAYER-201014251NA

PATIENT
  Sex: Female

DRUGS (2)
  1. BETASERON [Suspect]
     Dosage: 8 MIU, QOD
     Route: 058
  2. BETASERON [Suspect]
     Indication: MULTIPLE SCLEROSIS
     Dosage: BETAJECT
     Route: 058
     Dates: start: 20090109

REACTIONS (10)
  - MULTIPLE SCLEROSIS RELAPSE [None]
  - LUNG DISORDER [None]
  - COLON CANCER [None]
  - PULMONARY OEDEMA [None]
  - GAIT DISTURBANCE [None]
  - MUSCULAR WEAKNESS [None]
  - SPEECH DISORDER [None]
  - MEMORY IMPAIRMENT [None]
  - VISION BLURRED [None]
  - PNEUMONIA [None]
